FAERS Safety Report 6712341-3 (Version None)
Quarter: 2010Q2

REPORT INFORMATION
  Report Type: 
  Country: None (occurrence: None)
  Receive Date: 20100505
  Receipt Date: 20100423
  Transmission Date: 20101027
  Serious: Yes (Other)
  Sender: FDA-Public Use
  Company Number: ES-ELI_LILLY_AND_COMPANY-ES201004006694

PATIENT
  Sex: Female
  Weight: 55 kg

DRUGS (5)
  1. FORTEO [Suspect]
     Indication: OSTEOPOROSIS
     Dosage: 20 UG, DAILY (1/D)
     Route: 058
     Dates: start: 20100304, end: 20100420
  2. SINTROM [Concomitant]
     Indication: CARDIAC VALVE DISEASE
     Dosage: UNK, UNKNOWN
     Route: 048
     Dates: end: 20100401
  3. DIGOXIN [Concomitant]
     Indication: CARDIAC VALVE DISEASE
     Dosage: 1 MG, DAILY (1/D)
     Route: 048
     Dates: end: 20100401
  4. COLCHIMAX [Concomitant]
     Dosage: UNK, DAILY (1/D)
     Route: 065
     Dates: start: 20100401, end: 20100401
  5. IRBESARTAN [Concomitant]
     Dosage: 150 MG, DAILY (1/D)
     Route: 048
     Dates: start: 20100401, end: 20100401

REACTIONS (1)
  - HAEMARTHROSIS [None]
